FAERS Safety Report 10908907 (Version 1)
Quarter: 2015Q1

REPORT INFORMATION
  Report Type: Spontaneous
  Country: JP (occurrence: JP)
  Receive Date: 20150312
  Receipt Date: 20150312
  Transmission Date: 20150721
  Serious: Yes (Other)
  Sender: FDA-Public Use
  Company Number: PHJP2015JP002104

PATIENT
  Age: 71 Year
  Sex: Male

DRUGS (1)
  1. PURSENNIDE TAB [Suspect]
     Active Substance: SENNOSIDES A AND B
     Indication: PRODUCT USED FOR UNKNOWN INDICATION
     Dosage: 12 MG, UNK
     Route: 048
     Dates: start: 201404, end: 201404

REACTIONS (2)
  - Erythema multiforme [Unknown]
  - Drug eruption [None]
